FAERS Safety Report 5581394-0 (Version None)
Quarter: 2008Q1

REPORT INFORMATION
  Report Type: 
  Country: None (occurrence: None)
  Receive Date: 20080104
  Receipt Date: 20071206
  Transmission Date: 20080703
  Serious: Yes (Hospitalization, Other)
  Sender: FDA-Public Use
  Company Number: NO-BAYER-200717993GPV

PATIENT
  Age: 53 Year
  Sex: Female

DRUGS (1)
  1. MIRENA [Suspect]
     Indication: DRUG USE FOR UNKNOWN INDICATION
     Dosage: TOTAL DAILY DOSE: 20 ?G  UNIT DOSE: 20 ?G
     Route: 015

REACTIONS (3)
  - CEREBRAL HAEMORRHAGE [None]
  - PAIN IN EXTREMITY [None]
  - SPEECH DISORDER [None]
